FAERS Safety Report 5566932-6 (Version None)
Quarter: 2007Q4

REPORT INFORMATION
  Report Type: 
  Country: None (occurrence: None)
  Receive Date: 20071219
  Receipt Date: 20070330
  Transmission Date: 20080405
  Serious: No
  Sender: FDA-Public Use
  Company Number: US-BRISTOL-MYERS SQUIBB COMPANY-13733415

PATIENT
  Age: 58 Year
  Sex: Female
  Weight: 63 kg

DRUGS (4)
  1. PRAVACHOL [Suspect]
     Indication: BLOOD CHOLESTEROL INCREASED
     Dates: start: 20070101, end: 20070226
  2. ASCORBIC ACID [Concomitant]
  3. SYNTHROID [Concomitant]
  4. VICODIN [Concomitant]

REACTIONS (15)
  - ARTHRITIS [None]
  - CHEST PAIN [None]
  - COUGH [None]
  - FLATULENCE [None]
  - GASTROOESOPHAGEAL REFLUX DISEASE [None]
  - HEADACHE [None]
  - HEART RATE IRREGULAR [None]
  - HYPOGLYCAEMIA [None]
  - LACRIMATION INCREASED [None]
  - NEUROPATHY PERIPHERAL [None]
  - PAIN IN EXTREMITY [None]
  - PALPITATIONS [None]
  - RENAL PAIN [None]
  - URINARY TRACT INFECTION [None]
  - VENTRICULAR EXTRASYSTOLES [None]
